FAERS Safety Report 8817712 (Version 1)
Quarter: 2012Q4

REPORT INFORMATION
  Report Type: 
  Country: US (occurrence: US)
  Receive Date: 20121001
  Receipt Date: 20121001
  Transmission Date: 20130627
  Serious: No
  Sender: FDA-Public Use
  Company Number: US-PFIZER INC-2012241264

PATIENT
  Sex: Male

DRUGS (1)
  1. CHANTIX [Suspect]
     Indication: SMOKING CESSATION THERAPY
     Dosage: UNK
     Route: 048
     Dates: start: 201209

REACTIONS (6)
  - Drug ineffective [Unknown]
  - Abnormal dreams [Unknown]
  - Feeling abnormal [Unknown]
  - Insomnia [Unknown]
  - Somnolence [Unknown]
  - Tobacco user [Unknown]
